FAERS Safety Report 9509819 (Version 2)
Quarter: 2013Q3

REPORT INFORMATION
  Report Type: Spontaneous
  Country: US (occurrence: US)
  Receive Date: 20130909
  Receipt Date: 20130909
  Transmission Date: 20140515
  Serious: No
  Sender: FDA-Public Use
  Company Number: US-BRISTOL-MYERS SQUIBB COMPANY-18833053

PATIENT
  Age: 65 Year
  Sex: Female

DRUGS (4)
  1. ABILIFY TABS 30 MG [Suspect]
     Indication: SCHIZOAFFECTIVE DISORDER
     Dates: start: 1998, end: 201211
  2. ABILIFY TABS 30 MG [Suspect]
     Indication: POST-TRAUMATIC STRESS DISORDER
     Dates: start: 1998, end: 201211
  3. EFFEXOR [Concomitant]
  4. LORAZEPAM [Concomitant]

REACTIONS (2)
  - Disturbance in attention [Unknown]
  - Memory impairment [Unknown]
